FAERS Safety Report 8601824-7 (Version None)
Quarter: 2012Q3

REPORT INFORMATION
  Report Type: 
  Country: None (occurrence: None)
  Receive Date: 20120817
  Receipt Date: 20120531
  Transmission Date: 20120928
  Serious: No
  Sender: FDA-Public Use
  Company Number: US-BRISTOL-MYERS SQUIBB COMPANY-16548695

PATIENT
  Age: 70 Year
  Sex: Male

DRUGS (6)
  1. SYMBICORT [Concomitant]
     Dosage: 1DF=160/4 UNITS NOS
  2. SPRYCEL [Suspect]
     Indication: CHRONIC MYELOID LEUKAEMIA
     Route: 048
     Dates: start: 20120323, end: 20120327
  3. SIMVASTATIN [Concomitant]
  4. FLOMAX [Concomitant]
  5. ACETYLSALICYLIC ACID SRT [Concomitant]
  6. ASCORBIC ACID [Concomitant]

REACTIONS (3)
  - DYSPNOEA [None]
  - CHEST PAIN [None]
  - OROPHARYNGEAL PAIN [None]
